FAERS Safety Report 9396091 (Version 1)
Quarter: 2013Q3

REPORT INFORMATION
  Report Type: Spontaneous
  Country: GB (occurrence: None)
  Receive Date: 20130708
  Receipt Date: 20130708
  Transmission Date: 20140515
  Serious: Yes (Other)
  Sender: FDA-Public Use
  Company Number: THQ2013A04802

PATIENT
  Age: 24 Year
  Sex: Male

DRUGS (5)
  1. LANSOPRAZOLE (LANSOPRAZOLE) [Suspect]
     Indication: GASTROOESOPHAGEAL REFLUX DISEASE
     Route: 048
     Dates: start: 20130516, end: 20130530
  2. OMEPRAZOLE [Concomitant]
  3. CARBAMAZEPINE [Concomitant]
  4. LOPERAMIDE [Concomitant]
  5. DOMPERIDONE [Concomitant]

REACTIONS (5)
  - Depression [None]
  - Negative thoughts [None]
  - Depressed mood [None]
  - Intentional self-injury [None]
  - Suicidal ideation [None]
